FAERS Safety Report 4359595-9 (Version None)
Quarter: 2004Q2

REPORT INFORMATION
  Report Type: 
  Country: None (occurrence: None)
  Receive Date: 20040513
  Receipt Date: 20040503
  Transmission Date: 20050107
  Serious: Yes (Hospitalization, Disabling, Other)
  Sender: FDA-Public Use
  Company Number: 2003035058

PATIENT
  Age: 26 Year
  Sex: Male

DRUGS (4)
  1. ZITHROMAX [Suspect]
     Indication: PHARYNGOLARYNGEAL PAIN
     Dosage: UNK (UNK, 1 IN 1 D), ORAL
     Route: 048
     Dates: start: 20000711, end: 20000701
  2. CARBAMAZEPINE [Suspect]
     Indication: AFFECTIVE DISORDER
     Dosage: 400 MG (200 MG, 2  IN 1 D), ORAL
     Route: 048
     Dates: start: 20000628, end: 20000909
  3. VENLAFAXINE HCL [Concomitant]
  4. OLANZAPINE [Suspect]
     Indication: DEPRESSION
     Dosage: 5 MG (UNK, 1 IN 1 D), ORAL
     Route: 048
     Dates: start: 20000628, end: 20000909

REACTIONS (25)
  - AGGRESSION [None]
  - ALBUMIN GLOBULIN RATIO DECREASED [None]
  - ANAEMIA [None]
  - ASTHMA [None]
  - BAND NEUTROPHIL COUNT INCREASED [None]
  - BLOOD ALBUMIN DECREASED [None]
  - BRONCHITIS [None]
  - CANDIDIASIS [None]
  - DISEASE RECURRENCE [None]
  - FUNGAL INFECTION [None]
  - HERPES VIRUS INFECTION [None]
  - INSOMNIA [None]
  - LEUKOCYTOCLASTIC VASCULITIS [None]
  - NEUTROPHIL PERCENTAGE DECREASED [None]
  - ONYCHOMADESIS [None]
  - PHOTOSENSITIVITY ALLERGIC REACTION [None]
  - PROTEIN TOTAL DECREASED [None]
  - PRURITUS GENERALISED [None]
  - PSYCHOSOMATIC DISEASE [None]
  - STEVENS-JOHNSON SYNDROME [None]
  - TINEA CRURIS [None]
  - TOXIC EPIDERMAL NECROLYSIS [None]
  - TREATMENT NONCOMPLIANCE [None]
  - UPPER GASTROINTESTINAL HAEMORRHAGE [None]
  - VISION BLURRED [None]
